FAERS Safety Report 8016991-6 (Version None)
Quarter: 2012Q1

REPORT INFORMATION
  Report Type: 
  Country: None (occurrence: None)
  Receive Date: 20120102
  Receipt Date: 20111227
  Transmission Date: 20120608
  Serious: Yes (Other)
  Sender: FDA-Public Use
  Company Number: PHHY2011VE113401

PATIENT
  Sex: Female

DRUGS (6)
  1. CALCIBON (CALCIUM CITRATE) [Concomitant]
     Dosage: 1500 MG, DAILY
  2. ZOLEDRONOC ACID [Suspect]
     Indication: ARTHRITIS
     Dosage: 5 MG, YEARLY
     Route: 042
     Dates: start: 20110201
  3. ZOLEDRONOC ACID [Suspect]
     Indication: OSTEOPOROSIS
     Dosage: 5 MG, YEARLY
     Route: 042
     Dates: start: 20100201
  4. ROCALTROL [Concomitant]
     Dosage: UNK UKN, QD
  5. CALCIUM ACETATE [Concomitant]
     Dosage: UNK UKN, UNK
  6. ATORVA [Concomitant]
     Dosage: 50 MG, QD

REACTIONS (1)
  - FEMUR FRACTURE [None]
